FAERS Safety Report 8539707 (Version 2)
Quarter: 2013Q1

REPORT INFORMATION
  Report Type: Spontaneous
  Country: US (occurrence: US)
  Receive Date: 20120502
  Receipt Date: 20130103
  Transmission Date: 20140127
  Serious: Yes (Hospitalization, Other)
  Sender: FDA-Public Use
  Company Number: US-BAYER-2012-041476

PATIENT
  Age: 20 Year
  Sex: Female
  Weight: 65.76 kg

DRUGS (9)
  1. YASMIN [Suspect]
     Indication: CONTRACEPTION
     Dosage: UNK
     Dates: start: 200502, end: 200610
  2. YASMIN [Suspect]
     Indication: PREMENSTRUAL SYNDROME
  3. YAZ [Suspect]
     Indication: CONTRACEPTION
     Dosage: 1 TABLET ,DAILY
     Dates: start: 2006, end: 2007
  4. YAZ [Suspect]
     Indication: PREMENSTRUAL SYNDROME
     Dosage: UNK
     Dates: start: 2007, end: 2007
  5. OCELLA [Suspect]
     Indication: CONTRACEPTION
     Dosage: UNK
     Dates: start: 200908
  6. OCELLA [Suspect]
     Indication: PREMENSTRUAL SYNDROME
  7. DICYCLOMINE [Concomitant]
     Dosage: 20 MG, UNK
     Dates: start: 20061023
  8. PROTONIX [Concomitant]
     Dosage: 40 MG, DAILY
     Dates: start: 20061011
  9. BENTYL [Concomitant]

REACTIONS (6)
  - Gallbladder disorder [None]
  - Biliary dyskinesia [None]
  - Injury [None]
  - Pain [None]
  - General physical health deterioration [None]
  - Emotional distress [None]
